FAERS Safety Report 6170732-6 (Version None)
Quarter: 2009Q2

REPORT INFORMATION
  Report Type: 
  Country: None (occurrence: None)
  Receive Date: 20090427
  Receipt Date: 20090413
  Transmission Date: 20091009
  Serious: Yes (Life-Threatening, Hospitalization, Other)
  Sender: FDA-Public Use
  Company Number: 2009S1004896

PATIENT
  Age: 43 Year
  Sex: Female

DRUGS (3)
  1. AMNESTEEM [Suspect]
     Indication: ACNE CYSTIC
     Dates: start: 20081130, end: 20090212
  2. AMNESTEEM [Suspect]
     Indication: ACNE CYSTIC
     Dates: start: 20081130, end: 20090212
  3. SEASONALE [Suspect]
     Indication: ORAL CONTRACEPTION

REACTIONS (1)
  - MYOCARDIAL INFARCTION [None]
